FAERS Safety Report 14339973 (Version 1)
Quarter: 2017Q4

REPORT INFORMATION
  Report Type: Spontaneous
  Country: DE (occurrence: DE)
  Receive Date: 20171231
  Receipt Date: 20171231
  Transmission Date: 20180321
  Serious: Yes (Other)
  Sender: FDA-Public Use
  Company Number: DE-TEVA-2017-DE-838683

PATIENT
  Age: 69 Year
  Sex: Female
  Weight: 50 kg

DRUGS (3)
  1. BISOPROLOL-RATIOPHARM 5 MG TABLETTEN [Concomitant]
     Active Substance: BISOPROLOL
     Dosage: 2.5 MILLIGRAM DAILY;
     Route: 048
     Dates: start: 2014
  2. ASS RATIOPHARM 100 [Concomitant]
  3. PRAVA TEVA [Suspect]
     Active Substance: PRAVASTATIN SODIUM
     Route: 048
     Dates: start: 2014, end: 2017

REACTIONS (4)
  - Choking [Recovered/Resolved]
  - Drug intolerance [Recovering/Resolving]
  - Dyspnoea [Recovered/Resolved]
  - Increased bronchial secretion [Recovered/Resolved]

NARRATIVE: CASE EVENT DATE: 201703
